FAERS Safety Report 8161468-0 (Version None)
Quarter: 2012Q1

REPORT INFORMATION
  Report Type: 
  Country: None (occurrence: None)
  Receive Date: 20120224
  Receipt Date: 20110422
  Transmission Date: 20120608
  Serious: No
  Sender: FDA-Public Use
  Company Number: US-MYLANLABS-2011S1008571

PATIENT
  Sex: Male

DRUGS (1)
  1. ALPRAZOLAM [Suspect]

REACTIONS (2)
  - VOMITING [None]
  - MALAISE [None]
